FAERS Safety Report 24036964 (Version 1)
Quarter: 2024Q3

REPORT INFORMATION
  Report Type: Spontaneous
  Country: US (occurrence: US)
  Receive Date: 20240701
  Receipt Date: 20240701
  Transmission Date: 20241017
  Serious: No
  Sender: COVIS PHARMA
  Company Number: US-Covis Pharma GmbH-2024COV00789

PATIENT
  Age: 53 Year
  Sex: Female

DRUGS (1)
  1. OMNARIS [Suspect]
     Active Substance: CICLESONIDE
     Dosage: 1 SPRAY EACH NOSTRIL, 2 TIMES DAILY.
     Route: 045

REACTIONS (4)
  - Oropharyngeal pain [Unknown]
  - COVID-19 [Unknown]
  - Incorrect dose administered by device [Unknown]
  - Overdose [Unknown]

NARRATIVE: CASE EVENT DATE: 20240201
